FAERS Safety Report 4404290-0 (Version None)
Quarter: 2004Q3

REPORT INFORMATION
  Report Type: 
  Country: None (occurrence: None)
  Receive Date: 20040719
  Receipt Date: 20040707
  Transmission Date: 20050211
  Serious: No
  Sender: FDA-Public Use
  Company Number: 2004221725JP

PATIENT
  Age: 38 Year
  Sex: Male

DRUGS (1)
  1. XALATAN [Suspect]
     Indication: OPEN ANGLE GLAUCOMA
     Dosage: UNK, OPHTHALMIC
     Route: 047

REACTIONS (1)
  - INTRAOCULAR PRESSURE INCREASED [None]
